FAERS Safety Report 7451415-9 (Version None)
Quarter: 2011Q2

REPORT INFORMATION
  Report Type: 
  Country: None (occurrence: None)
  Receive Date: 20110422
  Receipt Date: 20110420
  Transmission Date: 20111010
  Serious: Yes (Other)
  Sender: FDA-Public Use
  Company Number: 11-236

PATIENT
  Sex: Female
  Weight: 65.7716 kg

DRUGS (1)
  1. IBUPROFEN [Suspect]
     Indication: HEADACHE
     Dosage: 440 MG ORAL; 440 MG ORAL
     Route: 048
     Dates: start: 20101101, end: 20110131

REACTIONS (4)
  - ANAPHYLACTIC REACTION [None]
  - DRUG HYPERSENSITIVITY [None]
  - SYNCOPE [None]
  - BLINDNESS TRANSIENT [None]
